FAERS Safety Report 19930506 (Version 1)
Quarter: 2021Q4

REPORT INFORMATION
  Report Type: Spontaneous
  Country: US (occurrence: US)
  Receive Date: 20211007
  Receipt Date: 20211007
  Transmission Date: 20220303
  Serious: No
  Sender: FDA-Public Use
  Company Number: US-SPROUT PHARMACEUTICALS, INC.-2021SP000270

PATIENT
  Sex: Female

DRUGS (1)
  1. ADDYI [Suspect]
     Active Substance: FLIBANSERIN
     Indication: Product used for unknown indication
     Route: 048

REACTIONS (5)
  - Hypotension [Unknown]
  - Dizziness [Unknown]
  - Joint swelling [Unknown]
  - Peripheral swelling [Unknown]
  - Somnolence [Unknown]
